FAERS Safety Report 23863519 (Version 1)
Quarter: 2024Q2

REPORT INFORMATION
  Report Type: Spontaneous
  Country: IT (occurrence: IT)
  Receive Date: 20240516
  Receipt Date: 20240516
  Transmission Date: 20240715
  Serious: Yes (Hospitalization, Other)
  Sender: FDA-Public Use
  Company Number: IT-VALIDUS PHARMACEUTICALS LLC-IT-VDP-2024-019249

PATIENT

DRUGS (1)
  1. LASIX [Suspect]
     Active Substance: FUROSEMIDE
     Indication: Intentional overdose
     Dosage: 1.5 G
     Route: 048
     Dates: start: 20240420, end: 20240420

REACTIONS (6)
  - Polyuria [Recovering/Resolving]
  - Hypovolaemia [Recovering/Resolving]
  - Metabolic alkalosis [Recovering/Resolving]
  - Intentional overdose [Recovering/Resolving]
  - Hypokalaemia [Recovering/Resolving]
  - Nausea [Recovering/Resolving]

NARRATIVE: CASE EVENT DATE: 20240420
